FAERS Safety Report 16713826 (Version 1)
Quarter: 2019Q3

REPORT INFORMATION
  Report Type: Spontaneous
  Country: LK (occurrence: LK)
  Receive Date: 20190819
  Receipt Date: 20190819
  Transmission Date: 20191004
  Serious: Yes (Disabling)
  Sender: FDA-Public Use
  Company Number: LK-CELLTRION INC.-2019LK023906

PATIENT

DRUGS (6)
  1. INFLIXIMAB (UNKNOWN) [Suspect]
     Active Substance: INFLIXIMAB
     Indication: CROHN^S DISEASE
     Dosage: 5 MG/KG, STARTING AT 0,2,AND 6 WEEKS AND WAS TO BE CONTINUED FOR 8WEEKS,THEREAFTER
  2. INFLIXIMAB (UNKNOWN) [Suspect]
     Active Substance: INFLIXIMAB
     Dosage: 5 MG/KG, STARTING AT 0,2,AND 6 WEEKS AND WAS TO BE CONTINUED FOR 8WEEKS,THEREAFTER
  3. INFLIXIMAB (UNKNOWN) [Suspect]
     Active Substance: INFLIXIMAB
     Dosage: 5 MG/KG, STARTING AT 0,2,AND 6 WEEKS AND WAS TO BE CONTINUED FOR 8WEEKS,THEREAFTER
  4. INFLIXIMAB (UNKNOWN) [Suspect]
     Active Substance: INFLIXIMAB
     Dosage: 5 MG/KG, STARTING AT 0,2,AND 6 WEEKS AND WAS TO BE CONTINUED FOR 8WEEKS,THEREAFTER
  5. INFLIXIMAB (UNKNOWN) [Suspect]
     Active Substance: INFLIXIMAB
     Dosage: 5 MG/KG, STARTING AT 0,2,AND 6 WEEKS AND WAS TO BE CONTINUED FOR 8WEEKS,THEREAFTER
  6. INFLIXIMAB (UNKNOWN) [Suspect]
     Active Substance: INFLIXIMAB
     Dosage: 5 MG/KG, STARTING AT 0,2,AND 6 WEEKS AND WAS TO BE CONTINUED FOR 8WEEKS,THEREAFTER

REACTIONS (2)
  - Filariasis lymphatic [Recovered/Resolved]
  - Lymphangitis [Recovered/Resolved]
